FAERS Safety Report 8474894 (Version 2)
Quarter: 2013Q4

REPORT INFORMATION
  Report Type: Spontaneous
  Country: US (occurrence: US)
  Receive Date: 20120323
  Receipt Date: 20131121
  Transmission Date: 20140711
  Serious: Yes (Hospitalization, Other)
  Sender: FDA-Public Use
  Company Number: US-TEVA-329215USA

PATIENT
  Sex: Female

DRUGS (2)
  1. LAMOTRIGINE [Suspect]
     Indication: EPILEPSY
     Dosage: 100 MILLIGRAM DAILY;
  2. PHENYTOIN [Concomitant]

REACTIONS (10)
  - Nightmare [Recovered/Resolved]
  - Hallucination, visual [Recovered/Resolved]
  - Hallucination, olfactory [Recovered/Resolved]
  - Hallucination, gustatory [Recovered/Resolved]
  - Malaise [Recovered/Resolved]
  - Mental impairment [Recovered/Resolved]
  - Disorientation [Recovered/Resolved]
  - Vertigo [Unknown]
  - Dizziness [Unknown]
  - Amnesia [Unknown]
